FAERS Safety Report 9681075 (Version 2)
Quarter: 2013Q4

REPORT INFORMATION
  Report Type: Report from Study
  Country: US (occurrence: US)
  Receive Date: 20131111
  Receipt Date: 20131120
  Transmission Date: 20140711
  Serious: Yes (Other)
  Sender: FDA-Public Use
  Company Number: US-SA-2013SA115178

PATIENT
  Age: 51 Year
  Sex: Male
  Weight: 89.4 kg

DRUGS (9)
  1. ZALTRAP [Suspect]
     Indication: CARCINOID TUMOUR
     Dosage: FREQUENCY EVERY TWO WEEK
     Route: 042
     Dates: start: 20130723, end: 20131015
  2. OCTREOTIDE [Suspect]
     Dosage: EVERY FOUR WEEK.
     Route: 030
     Dates: start: 20130716
  3. ENALAPRIL MALEATE [Concomitant]
     Dates: start: 20130806
  4. HYDROCHLOROTHIAZIDE [Concomitant]
     Dates: start: 20130806
  5. MAALOX [Concomitant]
     Dates: start: 20131022
  6. METHYLPHENIDATE HYDROCHLORIDE [Concomitant]
     Dates: start: 20131015
  7. OXYCODONE [Concomitant]
     Dates: start: 20130723
  8. OXYCONTIN [Concomitant]
     Dates: start: 20131001
  9. SILDENAFIL [Concomitant]
     Dates: start: 20130821

REACTIONS (3)
  - Osteonecrosis [Unknown]
  - Gingivitis [Unknown]
  - Stomatitis [Unknown]
